FAERS Safety Report 7425449-4 (Version None)
Quarter: 2011Q2

REPORT INFORMATION
  Report Type: 
  Country: None (occurrence: None)
  Receive Date: 20110420
  Receipt Date: 20110411
  Transmission Date: 20111010
  Serious: Yes (Other)
  Sender: FDA-Public Use
  Company Number: US-AMGEN-USASP2011019310

PATIENT
  Sex: Female

DRUGS (4)
  1. PROLIA [Suspect]
     Indication: OSTEOPOROSIS POSTMENOPAUSAL
     Dosage: 60 MG, Q6MO
     Dates: start: 20101114
  2. ESTRACE [Concomitant]
  3. PREVACID [Concomitant]
  4. VITAMIN B-12 [Concomitant]

REACTIONS (6)
  - PAIN IN JAW [None]
  - CATARACT [None]
  - DRY EYE [None]
  - NEUROMA [None]
  - EYE DISORDER [None]
  - VISUAL IMPAIRMENT [None]
